FAERS Safety Report 11391980 (Version 1)
Quarter: 2015Q3

REPORT INFORMATION
  Report Type: Spontaneous
  Country: US (occurrence: US)
  Receive Date: 20150818
  Receipt Date: 20150818
  Transmission Date: 20151125
  Serious: Yes (Hospitalization)
  Sender: FDA-Public Use
  Company Number: US-PFIZER INC-2015273929

PATIENT
  Age: 69 Year
  Sex: Female
  Weight: 82 kg

DRUGS (4)
  1. PREMARIN [Suspect]
     Active Substance: ESTROGENS, CONJUGATED
     Dosage: UNK
  2. CELECOXIB. [Suspect]
     Active Substance: CELECOXIB
     Dosage: UNK
  3. TRIAMTERENE. [Suspect]
     Active Substance: TRIAMTERENE
     Indication: DIURETIC THERAPY
  4. CELEBREX [Suspect]
     Active Substance: CELECOXIB
     Dosage: UNK

REACTIONS (3)
  - Blood magnesium decreased [Unknown]
  - Syncope [Unknown]
  - Blood sodium decreased [Unknown]
